FAERS Safety Report 14347704 (Version 3)
Quarter: 2024Q4

REPORT INFORMATION
  Report Type: Spontaneous
  Country: US (occurrence: US)
  Receive Date: 20180103
  Receipt Date: 20241024
  Transmission Date: 20250115
  Serious: Yes (Other)
  Sender: PFIZER
  Company Number: US-PFIZER INC-2017555250

PATIENT
  Age: 55 Year
  Sex: Female

DRUGS (1)
  1. XELJANZ [Suspect]
     Active Substance: TOFACITINIB CITRATE
     Indication: Rheumatoid arthritis
     Dosage: 5 MG, 2X/DAY
     Route: 048

REACTIONS (7)
  - Chronic kidney disease [Unknown]
  - Nasopharyngitis [Unknown]
  - Visual impairment [Unknown]
  - Headache [Unknown]
  - Pain in extremity [Unknown]
  - Peripheral swelling [Unknown]
  - Back pain [Unknown]
